FAERS Safety Report 11403858 (Version 2)
Quarter: 2015Q4

REPORT INFORMATION
  Report Type: Spontaneous
  Country: US (occurrence: US)
  Receive Date: 20150821
  Receipt Date: 20151102
  Transmission Date: 20160304
  Serious: Yes (Hospitalization, Other)
  Sender: FDA-Public Use
  Company Number: US-ELI_LILLY_AND_COMPANY-US201508004777

PATIENT
  Age: 56 Year
  Sex: Female
  Weight: 75.28 kg

DRUGS (2)
  1. HUMALOG [Suspect]
     Active Substance: INSULIN LISPRO
     Indication: TYPE 1 DIABETES MELLITUS
     Dosage: UNK, PRN
     Route: 058
  2. LEVEMIR [Concomitant]
     Active Substance: INSULIN DETEMIR
     Dosage: 18 U, BID

REACTIONS (10)
  - Dry mouth [Not Recovered/Not Resolved]
  - Incorrect dose administered by device [None]
  - Vomiting [Unknown]
  - Nausea [Unknown]
  - Incorrect dose administered [Unknown]
  - Pain [Unknown]
  - Blood glucose increased [Not Recovered/Not Resolved]
  - Epicondylitis [Unknown]
  - Product quality issue [None]
  - Wrong technique in product usage process [None]

NARRATIVE: CASE EVENT DATE: 201507
